FAERS Safety Report 7303743-5 (Version None)
Quarter: 2011Q1

REPORT INFORMATION
  Report Type: 
  Country: None (occurrence: None)
  Receive Date: 20110221
  Receipt Date: 20110214
  Transmission Date: 20110831
  Serious: Yes (Hospitalization, Other)
  Sender: FDA-Public Use
  Company Number: CA-ROCHE-749614

PATIENT
  Sex: Male
  Weight: 96 kg

DRUGS (8)
  1. APO-PREDNISONE [Concomitant]
  2. APO CITALOPRAM [Concomitant]
  3. HYDROCHLOROTHIAZIDE [Concomitant]
  4. CRESTOR [Concomitant]
  5. METHOTREXATE [Concomitant]
     Route: 058
  6. TOCILIZUMAB [Suspect]
     Indication: RHEUMATOID ARTHRITIS
     Dosage: FORM: INFUSION; TEMPORARILY INTERRUPTED FOR 2 MONTHS.
     Route: 042
     Dates: start: 20101027, end: 20110120
  7. APO-FOLIC [Concomitant]
     Dosage: DRUG REPORTED: APO-FOLIC ACID
  8. SLOW-K [Concomitant]
     Dosage: OSE: 8 MEQ

REACTIONS (3)
  - CORONARY ARTERY BYPASS [None]
  - IMPAIRED HEALING [None]
  - CHEST PAIN [None]
